FAERS Safety Report 6613196-8 (Version None)
Quarter: 2010Q1

REPORT INFORMATION
  Report Type: 
  Country: None (occurrence: None)
  Receive Date: 20100304
  Receipt Date: 20100219
  Transmission Date: 20100710
  Serious: Yes (Hospitalization)
  Sender: FDA-Public Use
  Company Number: US-ELI_LILLY_AND_COMPANY-US201002006175

PATIENT
  Sex: Male
  Weight: 98 kg

DRUGS (8)
  1. GEMCITABINE HCL [Suspect]
     Indication: TRANSITIONAL CELL CARCINOMA
     Dosage: UNK, OTHER
     Route: 042
     Dates: start: 20091228, end: 20091228
  2. GEMCITABINE HCL [Suspect]
     Dosage: UNK, OTHER
     Route: 042
     Dates: start: 20100101
  3. CISPLATIN [Suspect]
     Indication: TRANSITIONAL CELL CARCINOMA
     Dosage: UNK, OTHER
     Route: 042
     Dates: start: 20091221, end: 20091221
  4. CISPLATIN [Suspect]
     Dosage: UNK, OTHER
     Route: 042
     Dates: start: 20100101
  5. NORVASC [Concomitant]
     Dosage: 10 MG, DAILY (1/D)
     Route: 048
  6. VICODIN [Concomitant]
     Dosage: 5 MG, AS NEEDED
     Route: 048
  7. ZOFRAN [Concomitant]
     Dosage: 4 MG, UNK
     Route: 048
  8. PROMETHAZINE [Concomitant]

REACTIONS (6)
  - ANAEMIA [None]
  - BACTERAEMIA [None]
  - BORDETELLA INFECTION [None]
  - DEVICE RELATED SEPSIS [None]
  - PANCYTOPENIA [None]
  - SEPSIS [None]
